FAERS Safety Report 7974679-1 (Version None)
Quarter: 2011Q4

REPORT INFORMATION
  Report Type: 
  Country: None (occurrence: None)
  Receive Date: 20111213
  Receipt Date: 20111206
  Transmission Date: 20120403
  Serious: Yes (Death, Other)
  Sender: FDA-Public Use
  Company Number: PHHY2011JP49867

PATIENT
  Sex: Male

DRUGS (15)
  1. PAXIL [Concomitant]
     Dosage: 10 MG, UNK
     Route: 048
     Dates: start: 20101207, end: 20110917
  2. CLONAZEPAM [Concomitant]
     Dosage: 0.5 MG, UNK
     Route: 048
     Dates: start: 20110104, end: 20110917
  3. OXYCONTIN [Concomitant]
     Indication: METASTATIC RENAL CELL CARCINOMA
     Dosage: 50 MG, UNK
     Route: 048
     Dates: start: 20101220, end: 20110917
  4. ROHYPNOL [Concomitant]
     Dosage: 2 MG, UNK
     Route: 048
     Dates: start: 20101207, end: 20110917
  5. ZOMETA [Suspect]
     Indication: METASTATIC RENAL CELL CARCINOMA
     Dosage: UNK UKN, UNK
     Route: 041
     Dates: start: 20110208, end: 20110519
  6. ZOLPIDEM [Concomitant]
     Dosage: 10 MG, UNK
     Route: 048
     Dates: start: 20101207, end: 20110917
  7. ACETYLOL [Concomitant]
     Indication: PROPHYLAXIS
     Dosage: UNK UKN, UNK
     Route: 065
     Dates: start: 20110131, end: 20110917
  8. MYSER [Concomitant]
     Indication: PROPHYLAXIS
     Dosage: UNK UKN, UNK
     Route: 065
     Dates: start: 20110131, end: 20110917
  9. RABEPRAZOLE SODIUM [Concomitant]
     Dosage: 10 MG, UNK
     Route: 048
     Dates: start: 20101215, end: 20110917
  10. RISPERDAL [Concomitant]
     Dosage: 1 MG, UNK
     Route: 048
     Dates: start: 20110104, end: 20110917
  11. ZOMETA [Suspect]
     Dosage: UNK
     Route: 041
     Dates: end: 20110519
  12. MELOXICAM [Concomitant]
     Indication: METASTATIC RENAL CELL CARCINOMA
     Dosage: 10 MG, UNK
     Route: 048
     Dates: start: 20110201, end: 20110917
  13. LYRICA [Concomitant]
     Indication: METASTATIC RENAL CELL CARCINOMA
     Dosage: 300 MG, UNK
     Route: 048
     Dates: start: 20101217, end: 20110917
  14. AFINITOR [Suspect]
     Indication: METASTATIC RENAL CELL CARCINOMA
     Dosage: 10 MG, DAILY
     Route: 048
     Dates: start: 20110131, end: 20110917
  15. AMITRIPTYLINE HCL [Concomitant]
     Dosage: 75 MG, UNK
     Route: 048
     Dates: start: 20101207, end: 20110917

REACTIONS (5)
  - NEOPLASM MALIGNANT [None]
  - PNEUMONIA [None]
  - ATELECTASIS [None]
  - DEATH [None]
  - NEOPLASM PROGRESSION [None]
